FAERS Safety Report 4556533-0 (Version None)
Quarter: 2005Q1

REPORT INFORMATION
  Report Type: 
  Country: None (occurrence: None)
  Receive Date: 20050118
  Receipt Date: 20050104
  Transmission Date: 20050727
  Serious: No
  Sender: FDA-Public Use
  Company Number: 2005AC00024

PATIENT
  Age: 17 Year
  Sex: Female

DRUGS (4)
  1. DIPRIVAN [Suspect]
     Indication: SEDATION
  2. DIPRIVAN [Suspect]
     Indication: SEDATION
     Dosage: 118 UG/KG/MIN IV
     Route: 042
  3. PHENYLEPHRINE [Concomitant]
  4. ATRACURONIUM [Concomitant]

REACTIONS (6)
  - BLOOD TRIGLYCERIDES INCREASED [None]
  - ELECTROCARDIOGRAM ST-T CHANGE [None]
  - HAEMODIALYSIS [None]
  - METABOLIC ACIDOSIS [None]
  - RENAL FAILURE ACUTE [None]
  - RHABDOMYOLYSIS [None]
